FAERS Safety Report 26027886 (Version 1)
Quarter: 2025Q4

REPORT INFORMATION
  Report Type: Report from Study
  Country: US (occurrence: US)
  Receive Date: 20251111
  Receipt Date: 20251111
  Transmission Date: 20260118
  Serious: Yes (Hospitalization, Other)
  Sender: ACADIA PHARMACEUTICALS
  Company Number: US-ACADIA PHARMACEUTICALS INC.-ACA-2025-PIM-011881

PATIENT
  Age: 79 Year
  Sex: Female

DRUGS (16)
  1. NUPLAZID [Suspect]
     Active Substance: PIMAVANSERIN TARTRATE
     Indication: Parkinson^s disease
     Dosage: 34 MILLIGRAM, QD
     Route: 048
     Dates: start: 20230106
  2. NUPLAZID [Suspect]
     Active Substance: PIMAVANSERIN TARTRATE
     Indication: Hallucination
  3. NUPLAZID [Suspect]
     Active Substance: PIMAVANSERIN TARTRATE
     Indication: Delusion
  4. CHOLECALCIFEROL [Concomitant]
     Active Substance: CHOLECALCIFEROL
  5. DONEPEZIL [Concomitant]
     Active Substance: DONEPEZIL
  6. SEROQUEL [Concomitant]
     Active Substance: QUETIAPINE FUMARATE
  7. FUROSEMIDE [Concomitant]
     Active Substance: FUROSEMIDE
  8. BENZTROPINE [Concomitant]
     Active Substance: BENZTROPINE
  9. GAS-X [Concomitant]
     Active Substance: DIMETHICONE
  10. DULOXETINE [Concomitant]
     Active Substance: DULOXETINE
  11. GABAPENTIN [Concomitant]
     Active Substance: GABAPENTIN
  12. NEXIUM I.V. [Concomitant]
     Active Substance: ESOMEPRAZOLE SODIUM
  13. SIMVASTATIN [Concomitant]
     Active Substance: SIMVASTATIN
  14. SINGULAIR [Concomitant]
     Active Substance: MONTELUKAST SODIUM
  15. SPIRIVA [Concomitant]
     Active Substance: TIOTROPIUM BROMIDE MONOHYDRATE
  16. XARELTO [Concomitant]
     Active Substance: RIVAROXABAN

REACTIONS (2)
  - Pneumonia [Not Recovered/Not Resolved]
  - COVID-19 [Not Recovered/Not Resolved]

NARRATIVE: CASE EVENT DATE: 20251031
